FAERS Safety Report 7652467 (Version 2)
Quarter: 2014Q1

REPORT INFORMATION
  Report Type: Report from Study
  Country: US (occurrence: US)
  Receive Date: 20101101
  Receipt Date: 20140115
  Transmission Date: 20141002
  Serious: Yes (Hospitalization)
  Sender: FDA-Public Use
  Company Number: US-ACTELION-A-NJ2010-40859

PATIENT
  Age: 48 Year
  Sex: Female

DRUGS (16)
  1. TRACLEER [Suspect]
     Indication: PULMONARY ARTERIAL HYPERTENSION
     Dosage: 125 MG, BID
     Route: 048
     Dates: start: 2008
  2. TRACLEER [Suspect]
     Dosage: 62.5 MG, BID
     Route: 048
     Dates: start: 2008, end: 2008
  3. VENTAVIS [Concomitant]
     Indication: PULMONARY ARTERIAL HYPERTENSION
     Dosage: UNK
     Route: 055
     Dates: start: 20100412
  4. ADCIRCA [Concomitant]
  5. COUMADIN [Concomitant]
  6. PREDNISONE [Concomitant]
     Dosage: UNK, QD
     Dates: start: 1995
  7. KEPPRA [Concomitant]
     Dosage: 750 MG, BID
  8. POTASSIUM [Concomitant]
  9. VITAMIN D [Concomitant]
     Dosage: 1000 MG, UNK
  10. AZATHIOPRINE [Concomitant]
     Dosage: 50 MG, BID
  11. COREG [Concomitant]
     Dosage: 12.5 MG IN PM, 25 MG DAILY
  12. NEURONTIN [Concomitant]
     Dosage: 600 MG, TID
  13. LASIX [Concomitant]
     Dosage: 40 MG, UNK
  14. PROZAC [Concomitant]
     Dosage: 20 MG, UNK
  15. FOLIC ACID [Concomitant]
  16. PHENOBARBITAL [Concomitant]
     Dosage: 150 MG, UNK

REACTIONS (9)
  - Breast cancer [Recovered/Resolved]
  - Biopsy breast abnormal [Recovered/Resolved]
  - Mastectomy [Recovered/Resolved]
  - Haemorrhage [Recovered/Resolved]
  - Incoherent [Recovered/Resolved]
  - Hypotension [Recovered/Resolved]
  - Weight increased [Not Recovered/Not Resolved]
  - Muscular weakness [Not Recovered/Not Resolved]
  - Arrhythmia [Unknown]
